FAERS Safety Report 24313462 (Version 1)
Quarter: 2024Q3

REPORT INFORMATION
  Report Type: Spontaneous
  Country: US (occurrence: US)
  Receive Date: 20240912
  Receipt Date: 20240912
  Transmission Date: 20241016
  Serious: No
  Sender: Haleon PLC
  Company Number: US-HALEON-2196592

PATIENT
  Sex: Female

DRUGS (11)
  1. TERBINAFINE [Suspect]
     Active Substance: TERBINAFINE
     Indication: Mycobacterium avium complex infection
     Route: 065
  2. AZITHROMYCIN [Suspect]
     Active Substance: AZITHROMYCIN
     Indication: Mycobacterium avium complex infection
     Route: 065
  3. PRAVASTATIN [Suspect]
     Active Substance: PRAVASTATIN
     Indication: Mycobacterium avium complex infection
     Route: 065
  4. ETHAMBUTOL [Suspect]
     Active Substance: ETHAMBUTOL HYDROCHLORIDE
     Indication: Mycobacterium avium complex infection
     Route: 065
  5. ETHAMBUTOL [Suspect]
     Active Substance: ETHAMBUTOL HYDROCHLORIDE
     Route: 065
  6. OXYCODONE [Suspect]
     Active Substance: OXYCODONE
     Indication: Mycobacterium avium complex infection
     Route: 065
  7. RESTASIS [Suspect]
     Active Substance: CYCLOSPORINE
     Indication: Mycobacterium avium complex infection
     Route: 065
  8. ALBUTEROL SULFATE [Suspect]
     Active Substance: ALBUTEROL SULFATE
     Indication: Mycobacterium avium complex infection
     Dosage: 90 UG /ACTUATION INHALER
  9. ASPIRIN [Suspect]
     Active Substance: ASPIRIN
     Indication: Mycobacterium avium complex infection
     Dosage: 81 EC
     Route: 065
  10. VITAMIN D3 [Suspect]
     Active Substance: CHOLECALCIFEROL
     Indication: Mycobacterium avium complex infection
     Dosage: 50 MCG
     Route: 065
  11. ACETAMINOPHEN [Suspect]
     Active Substance: ACETAMINOPHEN
     Indication: Mycobacterium avium complex infection
     Route: 065

REACTIONS (1)
  - Drug resistance [Unknown]
